FAERS Safety Report 4511657-9 (Version None)
Quarter: 2004Q4

REPORT INFORMATION
  Report Type: 
  Country: None (occurrence: None)
  Receive Date: 20041123
  Receipt Date: 20041123
  Transmission Date: 20050328
  Serious: Yes (Hospitalization)
  Sender: FDA-Public Use
  Company Number: None

PATIENT
  Age: 7 Year
  Sex: Male

DRUGS (16)
  1. NEORAL [Suspect]
     Indication: IMMUNOSUPPRESSION
     Dosage: 300 MG BID ORAL
     Route: 048
     Dates: start: 20040317, end: 20040423
  2. NEORAL [Suspect]
     Indication: RENAL TRANSPLANT
     Dosage: 300 MG BID ORAL
     Route: 048
     Dates: start: 20040317, end: 20040423
  3. RANITIDINE [Concomitant]
  4. VALACYCLOVIR HCL [Concomitant]
  5. TUMS [Concomitant]
  6. SEPTRA [Concomitant]
  7. PREDNISONE [Concomitant]
  8. NYSTATIN [Concomitant]
  9. AMLODIPINE [Concomitant]
  10. MULTI-VITAMINS [Concomitant]
  11. DOCUSATE SODIUM [Concomitant]
  12. MYCOPHENOLATE MOFETIL [Concomitant]
  13. ASPIRIN [Concomitant]
  14. CLONIDINE [Concomitant]
  15. ALBUTEROL [Concomitant]
  16. IRON [Concomitant]

REACTIONS (3)
  - KIDNEY TRANSPLANT REJECTION [None]
  - THERAPEUTIC AGENT TOXICITY [None]
  - TUBULOINTERSTITIAL NEPHRITIS [None]
